FAERS Safety Report 20074773 (Version 1)
Quarter: 2021Q4

REPORT INFORMATION
  Report Type: Spontaneous
  Country: US (occurrence: US)
  Receive Date: 20211116
  Receipt Date: 20211116
  Transmission Date: 20220303
  Serious: Yes (Other)
  Sender: FDA-Public Use
  Company Number: US-drreddys-SPO/USA/21/0143726

PATIENT
  Age: 24 Year
  Sex: Male

DRUGS (1)
  1. ACCUTANE [Suspect]
     Active Substance: ISOTRETINOIN
     Indication: Product used for unknown indication
     Dosage: RMA ISSUE DATE: 17/SEPTEMBER/2021 3:26:02 PM, 14/OCTOBER/2021 2:00:30 PM.
     Dates: start: 20210917, end: 20211110

REACTIONS (2)
  - Mood altered [Unknown]
  - Dry skin [Unknown]
